FAERS Safety Report 9967801 (Version 2)
Quarter: 2015Q1

REPORT INFORMATION
  Report Type: Report from Study
  Country: US (occurrence: US)
  Receive Date: 20140306
  Receipt Date: 20150216
  Transmission Date: 20150721
  Serious: No
  Sender: FDA-Public Use
  Company Number: US-ABBVIE-13P-163-1144820-00

PATIENT
  Age: 45 Year
  Sex: Female
  Weight: 61.29 kg

DRUGS (8)
  1. HUMIRA [Suspect]
     Active Substance: ADALIMUMAB
     Indication: CROHN^S DISEASE
     Route: 065
     Dates: start: 201009, end: 201009
  2. HUMIRA [Suspect]
     Active Substance: ADALIMUMAB
     Dosage: FOUR WEEKS AFTER 160 MG DOSE
     Route: 065
     Dates: start: 2010
  3. CRESTOR [Concomitant]
     Active Substance: ROSUVASTATIN CALCIUM
     Indication: BLOOD CHOLESTEROL INCREASED
  4. DEXILANT [Concomitant]
     Active Substance: DEXLANSOPRAZOLE
     Indication: DUODENAL ULCER
  5. INVOKANA [Concomitant]
     Active Substance: CANAGLIFLOZIN
     Indication: DIABETES MELLITUS
  6. JANUVIA [Concomitant]
     Active Substance: SITAGLIPTIN PHOSPHATE
     Indication: DIABETES MELLITUS
  7. HUMIRA [Suspect]
     Active Substance: ADALIMUMAB
     Dosage: TWO WEEKS AFTER 160 MG DOSE
     Route: 065
     Dates: start: 2010, end: 2010
  8. VITAMIN B12 [Concomitant]
     Active Substance: CYANOCOBALAMIN
     Indication: PRODUCT USED FOR UNKNOWN INDICATION

REACTIONS (7)
  - Vulvovaginal dryness [Not Recovered/Not Resolved]
  - Sjogren^s syndrome [Not Recovered/Not Resolved]
  - Dry eye [Not Recovered/Not Resolved]
  - Urticaria [Not Recovered/Not Resolved]
  - Sinusitis [Not Recovered/Not Resolved]
  - Dry mouth [Not Recovered/Not Resolved]
  - Dry throat [Not Recovered/Not Resolved]

NARRATIVE: CASE EVENT DATE: 201303
